FAERS Safety Report 9720684 (Version 2)
Quarter: 2013Q4

REPORT INFORMATION
  Report Type: Report from Study
  Country: MX (occurrence: MX)
  Receive Date: 20131129
  Receipt Date: 20131129
  Transmission Date: 20140711
  Serious: Yes (Other)
  Sender: FDA-Public Use
  Company Number: PHHY2012MX049630

PATIENT
  Age: 53 Year
  Sex: Female

DRUGS (2)
  1. CO-DIOVAN [Suspect]
     Indication: HYPERTENSION
     Dosage: 1 DF,  PERDAY (160/12.5 MG)
     Dates: start: 201204, end: 201204
  2. MICCIL [Concomitant]
     Dosage: 1 DF,PER DAY

REACTIONS (2)
  - VIIth nerve paralysis [Recovering/Resolving]
  - Blood pressure fluctuation [Not Recovered/Not Resolved]
